FAERS Safety Report 17116249 (Version 1)
Quarter: 2019Q4

REPORT INFORMATION
  Report Type: Spontaneous
  Country: FR (occurrence: FR)
  Receive Date: 20191205
  Receipt Date: 20191205
  Transmission Date: 20200122
  Serious: Yes (Death)
  Sender: FDA-Public Use
  Company Number: FR-MYLANLABS-2019M1118646

PATIENT
  Age: 63 Year
  Sex: Male
  Weight: 63 kg

DRUGS (1)
  1. MIDAZOLAM [Suspect]
     Active Substance: MIDAZOLAM HYDROCHLORIDE
     Indication: SEDATION
     Dosage: 50 MILLIGRAM
     Route: 042
     Dates: start: 20190608, end: 20190608

REACTIONS (3)
  - Death [Fatal]
  - Wrong strength [Fatal]
  - Product preparation error [Fatal]

NARRATIVE: CASE EVENT DATE: 20190608
